FAERS Safety Report 6747405-1 (Version None)
Quarter: 2010Q2

REPORT INFORMATION
  Report Type: 
  Country: None (occurrence: None)
  Receive Date: 20100528
  Receipt Date: 20100524
  Transmission Date: 20101027
  Serious: Yes (Death)
  Sender: FDA-Public Use
  Company Number: ES-CELGENEUS-144-50794-10052027

PATIENT

DRUGS (3)
  1. VIDAZA [Suspect]
     Route: 065
     Dates: start: 20100114
  2. RED BLOOD CELLS [Concomitant]
     Dosage: 2 TRANSFUSIONS PER MONTH
     Route: 051
     Dates: start: 20091001
  3. NEORECORMON [Concomitant]
     Indication: DRUG USE FOR UNKNOWN INDICATION
     Route: 065
     Dates: start: 20091001

REACTIONS (1)
  - DEATH [None]
